FAERS Safety Report 11079665 (Version 5)
Quarter: 2015Q2

REPORT INFORMATION
  Report Type: Report from Study
  Country: IE (occurrence: IE)
  Receive Date: 20150430
  Receipt Date: 20150522
  Transmission Date: 20150821
  Serious: Yes (Life-Threatening, Hospitalization, Other)
  Sender: FDA-Public Use
  Company Number: IE-GILEAD-2015-0150902

PATIENT
  Age: 51 Year
  Sex: Male

DRUGS (23)
  1. LEDIPASVIR/SOFOSBUVIR [Suspect]
     Active Substance: LEDIPASVIR\SOFOSBUVIR
     Indication: HEPATITIS C
     Dosage: 1 DF, QD
     Route: 048
     Dates: start: 20141216, end: 20150303
  2. FRUSEMIDE                          /00032601/ [Concomitant]
     Active Substance: FUROSEMIDE
  3. LACTULOSE. [Concomitant]
     Active Substance: LACTULOSE
  4. RIBAVIRIN. [Suspect]
     Active Substance: RIBAVIRIN
     Indication: HEPATITIS C
     Dosage: 1000 MG, QD
     Route: 048
     Dates: start: 20141216
  5. TAZOCIN [Concomitant]
     Active Substance: PIPERACILLIN SODIUM\TAZOBACTAM SODIUM
  6. GENTAMYCIN                         /00047101/ [Concomitant]
     Active Substance: GENTAMICIN
  7. AMBISOME [Concomitant]
     Active Substance: AMPHOTERICIN B
     Dosage: UNK
     Dates: start: 201502
  8. ALDACTONE [Concomitant]
     Active Substance: SPIRONOLACTONE
  9. METOPROLOL TARTRATE. [Concomitant]
     Active Substance: METOPROLOL TARTRATE
  10. THIAMINE [Concomitant]
     Active Substance: THIAMINE
  11. TERLIPRESSIN [Concomitant]
     Active Substance: TERLIPRESSIN
  12. PARACETAMOL [Concomitant]
     Active Substance: ACETAMINOPHEN
  13. VANCOMYCIN [Concomitant]
     Active Substance: VANCOMYCIN
  14. ANCOTIL [Concomitant]
     Active Substance: FLUCYTOSINE
     Dosage: UNK
     Dates: start: 20150220
  15. PYRIDOXINE [Concomitant]
     Active Substance: PYRIDOXINE
  16. RANITIDINE [Concomitant]
     Active Substance: RANITIDINE\RANITIDINE HYDROCHLORIDE
  17. PANTOPRAZOLE [Concomitant]
     Active Substance: PANTOPRAZOLE SODIUM
  18. CIPROFLOXACIN. [Concomitant]
     Active Substance: CIPROFLOXACIN
  19. FLUCYTOSINE. [Interacting]
     Active Substance: FLUCYTOSINE
     Indication: MENINGITIS CRYPTOCOCCAL
     Route: 065
  20. RIFAXIMIN [Concomitant]
     Active Substance: RIFAXIMIN
  21. PROPANOLOL                         /00030001/ [Concomitant]
     Active Substance: PROPRANOLOL HYDROCHLORIDE
  22. OMEPRAZOLE. [Concomitant]
     Active Substance: OMEPRAZOLE
  23. MOVICOL [Concomitant]
     Active Substance: POLYETHYLENE GLYCOL 3350\POTASSIUM CHLORIDE\SODIUM BICARBONATE\SODIUM CHLORIDE

REACTIONS (3)
  - Meningitis tuberculous [Unknown]
  - Meningitis cryptococcal [Unknown]
  - Drug interaction [Unknown]

NARRATIVE: CASE EVENT DATE: 20150205
